FAERS Safety Report 21070888 (Version 4)
Quarter: 2025Q3

REPORT INFORMATION
  Report Type: Report from Study
  Country: US (occurrence: US)
  Receive Date: 20220712
  Receipt Date: 20250915
  Transmission Date: 20251020
  Serious: Yes (Hospitalization)
  Sender: TAKEDA
  Company Number: US-TAKEDA-2022TUS031923

PATIENT
  Sex: Female

DRUGS (27)
  1. PONATINIB [Suspect]
     Active Substance: PONATINIB
     Indication: Acute lymphocytic leukaemia recurrent
  2. PONATINIB [Suspect]
     Active Substance: PONATINIB
     Indication: Acute lymphocytic leukaemia (in remission)
     Dosage: 30 MILLIGRAM, QD
  3. PONATINIB [Suspect]
     Active Substance: PONATINIB
     Dosage: 15 MILLIGRAM, QD
  4. PONATINIB [Suspect]
     Active Substance: PONATINIB
     Dosage: 5 MILLIGRAM, QD
  5. TRAZODONE HCL [Concomitant]
     Active Substance: TRAZODONE HYDROCHLORIDE
  6. HYDROXYZINE HYDROCHLORIDE [Concomitant]
     Active Substance: HYDROXYZINE HYDROCHLORIDE
  7. LASIX [Concomitant]
     Active Substance: FUROSEMIDE
  8. FAMOTIDINE [Concomitant]
     Active Substance: FAMOTIDINE
  9. LOPERAMIDE HYDROCHLORIDE [Concomitant]
     Active Substance: LOPERAMIDE HYDROCHLORIDE
  10. DOCUSATE SODIUM [Concomitant]
     Active Substance: DOCUSATE SODIUM
  11. DYCLONINE HYDROCHLORIDE [Concomitant]
     Active Substance: DYCLONINE HYDROCHLORIDE
  12. ONDANSETRON HYDROCHLORIDE [Concomitant]
     Active Substance: ONDANSETRON HYDROCHLORIDE
  13. COMPAZINE [Concomitant]
     Active Substance: PROCHLORPERAZINE MALEATE
  14. ACYCLOVIR [Concomitant]
     Active Substance: ACYCLOVIR
  15. FOLIC ACID [Concomitant]
     Active Substance: FOLIC ACID
  16. CELEBREX [Concomitant]
     Active Substance: CELECOXIB
  17. OLANZAPINE [Concomitant]
     Active Substance: OLANZAPINE
  18. LEVOFLOXACIN [Concomitant]
     Active Substance: LEVOFLOXACIN
  19. ALLOPURINOL [Concomitant]
     Active Substance: ALLOPURINOL
  20. CYMBALTA [Concomitant]
     Active Substance: DULOXETINE HYDROCHLORIDE
  21. FLUCONAZOLE [Concomitant]
     Active Substance: FLUCONAZOLE
  22. VITAMIN D [Concomitant]
     Active Substance: VITAMIN D NOS
  23. AIRBORNE [Concomitant]
     Active Substance: HERBALS\MINERALS\VITAMINS
  24. TUMS [Concomitant]
     Active Substance: CALCIUM CARBONATE
  25. CYANOCOBALAMIN\DEXPANTHENOL\NIACINAMIDE\PYRIDOXINE HYDROCHLORIDE\RIBOF [Concomitant]
     Active Substance: CYANOCOBALAMIN\DEXPANTHENOL\NIACINAMIDE\PYRIDOXINE HYDROCHLORIDE\RIBOFLAVIN 5^-PHOSPHATE SODIUM\THIA
  26. DAPSONE [Concomitant]
     Active Substance: DAPSONE
  27. SODIUM FLUORIDE\STANNOUS FLUORIDE [Concomitant]
     Active Substance: SODIUM FLUORIDE\STANNOUS FLUORIDE

REACTIONS (9)
  - Swelling [Unknown]
  - Full blood count decreased [Unknown]
  - Bone pain [Unknown]
  - Skin exfoliation [Unknown]
  - Rash [Unknown]
  - Asthenia [Unknown]
  - Wrong technique in product usage process [Unknown]
  - Product use issue [Unknown]
  - Product dose omission issue [Unknown]
